FAERS Safety Report 6306033-2 (Version None)
Quarter: 2009Q3

REPORT INFORMATION
  Report Type: 
  Country: None (occurrence: None)
  Receive Date: 20090810
  Receipt Date: 20090810
  Transmission Date: 20100115
  Serious: Yes (Life-Threatening, Hospitalization)
  Sender: FDA-Public Use
  Company Number: None

PATIENT
  Age: 20 Year
  Sex: Female
  Weight: 44.4525 kg

DRUGS (4)
  1. NUVARING [Suspect]
     Indication: MENSTRUATION IRREGULAR
     Dosage: 1 RING 3WKS IN 1 OUT VAG
     Route: 067
     Dates: start: 20050419, end: 20070501
  2. NUVARING [Suspect]
     Indication: PREGNANCY
     Dosage: 1 RING 3WKS IN 1 OUT VAG
     Route: 067
     Dates: start: 20050419, end: 20070501
  3. NUVARING [Suspect]
     Indication: MENSTRUATION IRREGULAR
     Dosage: 1 RING 3WKS IN 1 OUT VAG
     Route: 067
     Dates: start: 20080316, end: 20090726
  4. NUVARING [Suspect]
     Indication: PREGNANCY
     Dosage: 1 RING 3WKS IN 1 OUT VAG
     Route: 067
     Dates: start: 20080316, end: 20090726

REACTIONS (1)
  - DEEP VEIN THROMBOSIS [None]
